FAERS Safety Report 7600313-6 (Version None)
Quarter: 2011Q3

REPORT INFORMATION
  Report Type: 
  Country: None (occurrence: None)
  Receive Date: 20110711
  Receipt Date: 20110629
  Transmission Date: 20111222
  Serious: Yes (Other)
  Sender: FDA-Public Use
  Company Number: US-BAYER-200820960NA

PATIENT
  Age: 53 Year
  Sex: Female

DRUGS (7)
  1. BETASERON [Suspect]
     Dosage: 4 MIU, QOD
     Route: 058
  2. BETASERON [Suspect]
     Indication: RELAPSING-REMITTING MULTIPLE SCLEROSIS
     Dosage: 8 MIU, QOD
     Route: 058
     Dates: start: 20021023, end: 20100201
  3. LYRICA [Concomitant]
  4. ANALGESICS [Concomitant]
  5. BETASERON [Suspect]
     Dosage: 6 MIU, QOD
     Route: 058
  6. BETASERON [Suspect]
     Indication: SECONDARY PROGRESSIVE MULTIPLE SCLEROSIS
     Dosage: 2 MIU QOD
     Route: 058
     Dates: start: 20110309
  7. MUSCLE RELAXANTS [Concomitant]

REACTIONS (25)
  - BLOOD PRESSURE INCREASED [None]
  - DISCOMFORT [None]
  - GAIT DISTURBANCE [None]
  - SINUSITIS [None]
  - ANKLE FRACTURE [None]
  - MULTIPLE SCLEROSIS [None]
  - MOBILITY DECREASED [None]
  - FEELING COLD [None]
  - GINGIVAL ULCERATION [None]
  - PURULENT DISCHARGE [None]
  - CONTUSION [None]
  - MUSCULAR WEAKNESS [None]
  - VERTIGO [None]
  - ERYTHEMA [None]
  - LIGAMENT RUPTURE [None]
  - BURNING SENSATION [None]
  - FATIGUE [None]
  - JOINT SWELLING [None]
  - CYST [None]
  - INJECTION SITE ERYTHEMA [None]
  - ABASIA [None]
  - TREMOR [None]
  - AMNESIA [None]
  - DIZZINESS [None]
  - JOINT EFFUSION [None]
